FAERS Safety Report 8313769-0 (Version None)
Quarter: 2012Q2

REPORT INFORMATION
  Report Type: 
  Country: None (occurrence: None)
  Receive Date: 20120426
  Receipt Date: 20110808
  Transmission Date: 20120825
  Serious: Yes (Other)
  Sender: FDA-Public Use
  Company Number: US-TEVA-US020908

PATIENT
  Sex: Male
  Weight: 82 kg

DRUGS (2)
  1. DEXEDRINE [Suspect]
     Indication: ATTENTION DEFICIT/HYPERACTIVITY DISORDER
     Dosage: 10 MILLIGRAM;
     Route: 048
     Dates: start: 19970101, end: 20070701
  2. PROVIGIL [Suspect]
     Indication: AUTOIMMUNE DISORDER
     Dosage: 200 MILLIGRAM;
     Route: 048
     Dates: start: 20070601

REACTIONS (3)
  - DRUG INTERACTION [None]
  - HYPERTENSION [None]
  - HEADACHE [None]
